FAERS Safety Report 7241896-8 (Version None)
Quarter: 2011Q1

REPORT INFORMATION
  Report Type: 
  Country: None (occurrence: None)
  Receive Date: 20110124
  Receipt Date: 20110114
  Transmission Date: 20110831
  Serious: Yes (Other)
  Sender: FDA-Public Use
  Company Number: US-ASTRAZENECA-2009UW04582

PATIENT
  Age: 83 Year
  Sex: Female
  Weight: 54.9 kg

DRUGS (6)
  1. CRESTOR [Suspect]
     Route: 048
     Dates: start: 20080104
  2. LOTREL [Concomitant]
  3. CRESTOR [Suspect]
     Dosage: DOSE LESS THAN 5 MGS DAILY.
     Route: 048
  4. TOPROL-XL [Concomitant]
     Route: 048
  5. ACIFEX [Concomitant]
  6. LANEXA [Concomitant]

REACTIONS (5)
  - ALANINE AMINOTRANSFERASE INCREASED [None]
  - RASH [None]
  - NAUSEA [None]
  - HAEMATOCHEZIA [None]
  - ASPARTATE AMINOTRANSFERASE INCREASED [None]
